FAERS Safety Report 8425915-9 (Version None)
Quarter: 2012Q2

REPORT INFORMATION
  Report Type: 
  Country: None (occurrence: None)
  Receive Date: 20120611
  Receipt Date: 20120529
  Transmission Date: 20120825
  Serious: Yes (Other)
  Sender: FDA-Public Use
  Company Number: DZ-NOVOPROD-352917

PATIENT
  Age: 10 Year
  Sex: Male

DRUGS (4)
  1. NOVORAPID FLEXPEN [Suspect]
     Indication: TYPE 1 DIABETES MELLITUS
     Dosage: 2 IU, QD (MIDDAY)
     Route: 065
  2. ACTRAPID [Concomitant]
     Indication: TYPE 1 DIABETES MELLITUS
     Dosage: (2 UI MORNING AND 1.5 UI EVENING)
     Route: 065
  3. INSULATARD NPH HUMAN [Concomitant]
     Indication: TYPE 1 DIABETES MELLITUS
     Dosage: (13 UI MORNING AND 17 UI EVENING)
  4. ROVAMYCINE                         /00074401/ [Concomitant]
     Dosage: 1 TAB, BID

REACTIONS (3)
  - EYE OEDEMA [None]
  - SKIN PLAQUE [None]
  - PRURITUS GENERALISED [None]
